FAERS Safety Report 13025024 (Version 1)
Quarter: 2016Q4

REPORT INFORMATION
  Report Type: Report from Study
  Country: FR (occurrence: FR)
  Receive Date: 20161213
  Receipt Date: 20161213
  Transmission Date: 20170207
  Serious: Yes (Hospitalization, Other)
  Sender: FDA-Public Use
  Company Number: FR-BRISTOL-MYERS SQUIBB COMPANY-BMS-2016-103977

PATIENT
  Age: 41 Year
  Sex: Male
  Weight: 65 kg

DRUGS (8)
  1. EUPANTOL [Concomitant]
     Active Substance: PANTOPRAZOLE SODIUM
     Indication: PRODUCT USED FOR UNKNOWN INDICATION
     Dosage: 40 MG, ONCE DAILY
     Route: 065
     Dates: start: 201601, end: 201602
  2. METHADONE [Concomitant]
     Active Substance: METHADONE HYDROCHLORIDE
     Indication: PRODUCT USED FOR UNKNOWN INDICATION
     Dosage: 40 MG, ONCE DAILY
     Route: 065
     Dates: start: 2011
  3. ENTECAVIR. [Suspect]
     Active Substance: ENTECAVIR
     Indication: HEPATITIS B
     Dosage: 0.5 MG,ONCE DAILY
     Route: 065
     Dates: start: 2012
  4. BEVITINE [Concomitant]
     Active Substance: THIAMINE
     Indication: VITAMIN B1 DEFICIENCY
     Dosage: 250 MG, ONCE DAILY
     Route: 065
     Dates: start: 201601, end: 201602
  5. PROPRANOLOL [Concomitant]
     Active Substance: PROPRANOLOL\PROPRANOLOL HYDROCHLORIDE
     Indication: PRODUCT USED FOR UNKNOWN INDICATION
     Dosage: 160 MG, ONCE DAILY
     Route: 065
     Dates: end: 20160204
  6. LASILIX                            /00032601/ [Concomitant]
     Active Substance: FUROSEMIDE
     Indication: ASCITES
     Dosage: 80 MG, ONCE DAILY
     Route: 065
     Dates: start: 20160204
  7. NORFLOXACINE [Concomitant]
     Active Substance: NORFLOXACIN
     Indication: PRODUCT USED FOR UNKNOWN INDICATION
     Dosage: 400 MG, ONCE DAILY
     Route: 065
     Dates: start: 2015
  8. BECILAN [Concomitant]
     Active Substance: PYRIDOXINE
     Indication: VITAMIN B6 DEFICIENCY
     Dosage: 250 MG,ONCE DAILY
     Route: 065
     Dates: start: 201601, end: 201602

REACTIONS (9)
  - Ascites [Recovered/Resolved]
  - Pleural effusion [Unknown]
  - Liver transplant [Recovered/Resolved]
  - Hyperkalaemia [Unknown]
  - Confusional state [Unknown]
  - Hyponatraemia [Unknown]
  - Hepatorenal syndrome [Recovered/Resolved]
  - Hepatic encephalopathy [Recovered/Resolved]
  - Acute kidney injury [Recovered/Resolved]

NARRATIVE: CASE EVENT DATE: 20151116
